FAERS Safety Report 4423976-5 (Version None)
Quarter: 2004Q3

REPORT INFORMATION
  Report Type: 
  Country: None (occurrence: None)
  Receive Date: 20040805
  Receipt Date: 20040723
  Transmission Date: 20050211
  Serious: Yes (Other)
  Sender: FDA-Public Use
  Company Number: 2004050539

PATIENT
  Age: 77 Year
  Sex: Male

DRUGS (9)
  1. ATARAX [Suspect]
     Indication: ILL-DEFINED DISORDER
     Dosage: UNK; ORAL
     Route: 048
     Dates: start: 20040420, end: 20040421
  2. ATRACURIUM BESYLATE [Suspect]
     Indication: ILL-DEFINED DISORDER
     Dosage: UNK; INTRAVENOUS
     Route: 042
     Dates: start: 20040421, end: 20040421
  3. REMIFENTANIL HYDROCHLORIDE (REMIFENTANIL HYDROCHLORIDE) [Suspect]
     Indication: ILL-DEFINED DISORDER
     Dosage: UNK; INTRAVENOUS
     Route: 042
     Dates: start: 20040421, end: 20040421
  4. NALBUPHINE HCL [Suspect]
     Indication: ILL-DEFINED DISORDER
     Dosage: 20 MG; INTRAVENOUS
     Route: 042
     Dates: start: 20040421, end: 20040421
  5. EPHEDRINE (EPHEDRINE) [Suspect]
     Indication: ILL-DEFINED DISORDER
     Dosage: 20 MG; INTRAVENOUS
     Route: 042
     Dates: start: 20040421, end: 20040421
  6. CLONIDINE [Suspect]
     Indication: ILL-DEFINED DISORDER
     Dosage: 0.15 MG, INTRAVENOUS
     Route: 042
     Dates: start: 20040421, end: 20040421
  7. AMITRIPTYLINE HYDROCHLORIDE [Concomitant]
  8. INDAPAMIDE [Concomitant]
  9. CIPROFIBRATE [Concomitant]

REACTIONS (4)
  - C-REACTIVE PROTEIN INCREASED [None]
  - CONSTIPATION [None]
  - LEUKOCYTOSIS [None]
  - PANCREATITIS ACUTE [None]
